FAERS Safety Report 7095737-2 (Version None)
Quarter: 2010Q4

REPORT INFORMATION
  Report Type: 
  Country: None (occurrence: None)
  Receive Date: 20101111
  Receipt Date: 20101025
  Transmission Date: 20110411
  Serious: Yes (Other)
  Sender: FDA-Public Use
  Company Number: PHHY2010FR71594

PATIENT
  Sex: Male

DRUGS (12)
  1. RASILEZ [Suspect]
     Indication: HYPERTENSION
     Dosage: 150 MG, QD
     Route: 048
     Dates: start: 20091215, end: 20100803
  2. ZOLPIDEM [Concomitant]
  3. AMLODIPINE [Concomitant]
     Dosage: 10 MG, DAILY
     Route: 048
  4. SINGULAIR [Concomitant]
     Dosage: 10 MG, DAILY
     Route: 048
  5. AIROMIR [Concomitant]
  6. QVAR 40 [Concomitant]
  7. TIAPRIDAL [Concomitant]
     Dosage: 20 ORAL DROPS, DAILY
  8. XYZAL [Concomitant]
     Indication: ASTHMA
     Route: 048
  9. CELIPROLOL [Concomitant]
     Dosage: 200 MG, DAILY
     Route: 048
  10. ZOLOFT [Concomitant]
     Dosage: 50 MG, 2 DF DAILY
  11. MOTILIUM [Concomitant]
     Indication: GASTROOESOPHAGEAL REFLUX DISEASE
  12. PANTOPRAZOLE [Concomitant]
     Indication: GASTROOESOPHAGEAL REFLUX DISEASE

REACTIONS (4)
  - ANAPHYLACTIC REACTION [None]
  - ANGIOEDEMA [None]
  - ERYTHEMA [None]
  - FACE OEDEMA [None]
